FAERS Safety Report 7439837-3 (Version None)
Quarter: 2011Q2

REPORT INFORMATION
  Report Type: 
  Country: None (occurrence: None)
  Receive Date: 20110427
  Receipt Date: 20100610
  Transmission Date: 20111010
  Serious: No
  Sender: FDA-Public Use
  Company Number: US-MYLANLABS-2010S1002308

PATIENT
  Age: 79 Year
  Sex: Male
  Weight: 102.06 kg

DRUGS (5)
  1. TRIAMTERENE AND HYDROCHLOROTHIAZIDE [Concomitant]
     Dosage: 37.5MG/25MG
     Route: 048
     Dates: start: 20050101
  2. METFORMIN [Concomitant]
     Indication: DIABETES MELLITUS
     Route: 048
  3. DILTIAZEM HCL [Suspect]
     Indication: BLOOD PRESSURE INCREASED
     Route: 048
     Dates: start: 20090303, end: 20090327
  4. DILTIAZEM HCL [Suspect]
     Route: 048
     Dates: start: 20100101, end: 20100209
  5. ASPIRIN [Concomitant]
     Route: 048

REACTIONS (13)
  - BLOOD PRESSURE INCREASED [None]
  - HEADACHE [None]
  - RASH PRURITIC [None]
  - DERMATITIS [None]
  - DRUG INEFFECTIVE [None]
  - EPISTAXIS [None]
  - FATIGUE [None]
  - NIGHT SWEATS [None]
  - DRY MOUTH [None]
  - SKIN IRRITATION [None]
  - DIZZINESS [None]
  - EAR PAIN [None]
  - VISION BLURRED [None]
